FAERS Safety Report 5132968-2 (Version None)
Quarter: 2006Q4

REPORT INFORMATION
  Report Type: 
  Country: None (occurrence: None)
  Receive Date: 20061017
  Receipt Date: 20061012
  Transmission Date: 20070319
  Serious: Yes (Hospitalization)
  Sender: FDA-Public Use
  Company Number: TCI2006A02130

PATIENT
  Age: 61 Year
  Sex: Male

DRUGS (7)
  1. LANSOPRAZOLE [Suspect]
     Indication: PROPHYLAXIS AGAINST GASTROINTESTINAL ULCER
     Dosage: 15 MG (15 MG, 1 IN 1 D); PER ORAL
     Route: 048
     Dates: start: 20051229, end: 20060512
  2. ASPIRIN [Concomitant]
  3. PLETAAL (CILOSTAZOL) (TABLETS) [Concomitant]
  4. MUCOSTA (REBAMIPIDE) (TABLETS) [Concomitant]
  5. FERROMIA (FERROUS CITRATE) (TABLETS) [Concomitant]
  6. MAGNESIUM OXIDE (GRANULATE) [Concomitant]
  7. ADALAT [Concomitant]

REACTIONS (6)
  - ASTHENIA [None]
  - BLOOD CREATINE PHOSPHOKINASE INCREASED [None]
  - DIARRHOEA [None]
  - HYPOKALAEMIA [None]
  - MUSCULAR WEAKNESS [None]
  - MYOPATHY [None]
